FAERS Safety Report 12413039 (Version 1)
Quarter: 2016Q2

REPORT INFORMATION
  Report Type: Spontaneous
  Country: US (occurrence: US)
  Receive Date: 20160527
  Receipt Date: 20160527
  Transmission Date: 20160815
  Serious: Yes (Other)
  Sender: FDA-Public Use
  Company Number: US-BAYER-2016-095268

PATIENT
  Age: 76 Year
  Sex: Female
  Weight: 90.7 kg

DRUGS (3)
  1. CITRACAL MAXIMUM [Suspect]
     Active Substance: CALCIUM CITRATE\CHOLECALCIFEROL
     Dosage: 2 DF, BID
     Route: 048
     Dates: start: 2007, end: 201604
  2. XARELTO [Concomitant]
     Active Substance: RIVAROXABAN
  3. BAYER LOW DOSE [Suspect]
     Active Substance: ASPIRIN
     Indication: ISCHAEMIC HEART DISEASE PROPHYLAXIS
     Dosage: 1 DF, QD
     Route: 048
     Dates: start: 1977, end: 201604

REACTIONS (2)
  - Thrombosis [Recovered/Resolved]
  - Product difficult to swallow [None]

NARRATIVE: CASE EVENT DATE: 201604
